FAERS Safety Report 5600868-7 (Version None)
Quarter: 2008Q1

REPORT INFORMATION
  Report Type: 
  Country: None (occurrence: None)
  Receive Date: 20080122
  Receipt Date: 20080122
  Transmission Date: 20080703
  Serious: Yes (Hospitalization)
  Sender: FDA-Public Use
  Company Number: None

PATIENT
  Age: 55 Year
  Sex: Male
  Weight: 114.3065 kg

DRUGS (4)
  1. CETUXIMAB 400MG/M2 [Suspect]
     Indication: TONSIL CANCER
     Dosage: 940MG X 1 IV
     Route: 042
     Dates: start: 20071219
  2. CETUXIMAB 250MG/M2 [Suspect]
     Dosage: 588MG QW IV
     Route: 042
     Dates: start: 20071226
  3. CETUXIMAB 250MG/M2 [Suspect]
     Dosage: 588MG QW IV
     Route: 042
     Dates: start: 20080102
  4. CETUXIMAB 250MG/M2 [Suspect]
     Dosage: 588MG QW IV
     Route: 042
     Dates: start: 20080109

REACTIONS (2)
  - CATHETER SITE INFECTION [None]
  - CATHETER SITE PAIN [None]
